FAERS Safety Report 16067914 (Version 2)
Quarter: 2019Q2

REPORT INFORMATION
  Report Type: Report from Study
  Country: DE (occurrence: DE)
  Receive Date: 20190313
  Receipt Date: 20190610
  Transmission Date: 20190711
  Serious: Yes (Hospitalization, Other)
  Sender: FDA-Public Use
  Company Number: DE-MYLANLABS-2019M1023037

PATIENT
  Sex: Female

DRUGS (4)
  1. METHOTREXATE. [Suspect]
     Active Substance: METHOTREXATE
     Dosage: 15 MILLIGRAM
     Dates: start: 20170130
  2. METHOTREXATE. [Suspect]
     Active Substance: METHOTREXATE
     Indication: PRODUCT USED FOR UNKNOWN INDICATION
     Dosage: UNK
  3. METHOTREXATE. [Suspect]
     Active Substance: METHOTREXATE
     Dosage: 15 MILLIGRAM
     Route: 065
     Dates: start: 20170804
  4. METHOTREXATE. [Suspect]
     Active Substance: METHOTREXATE
     Dosage: 15 MILLIGRAM, UNK
     Dates: start: 20170503

REACTIONS (8)
  - Escherichia urinary tract infection [Unknown]
  - Rectal prolapse [Recovered/Resolved]
  - Gastric ulcer [Recovered/Resolved]
  - Hepatomegaly [Unknown]
  - Anal incontinence [Recovered/Resolved]
  - Diverticulum intestinal [Unknown]
  - Glycogenic acanthosis [Recovered/Resolved]
  - Barrett^s oesophagus [Recovered/Resolved]

NARRATIVE: CASE EVENT DATE: 20170715
